FAERS Safety Report 20395073 (Version 3)
Quarter: 2022Q1

REPORT INFORMATION
  Report Type: Report from Study
  Country: CA (occurrence: CA)
  Receive Date: 20220130
  Receipt Date: 20220324
  Transmission Date: 20220423
  Serious: Yes (Other)
  Sender: FDA-Public Use
  Company Number: CA-SA-SAC20210409001701

PATIENT
  Age: 60 Year
  Sex: Female

DRUGS (7)
  1. TERIFLUNOMIDE [Suspect]
     Active Substance: TERIFLUNOMIDE
     Indication: Relapsing-remitting multiple sclerosis
     Dosage: 14 MG, QD
     Route: 048
     Dates: start: 20210322
  2. PLAVIX [Concomitant]
     Active Substance: CLOPIDOGREL BISULFATE
  3. DEXILANT [Concomitant]
     Active Substance: DEXLANSOPRAZOLE
  4. TELMISARTAN [Concomitant]
     Active Substance: TELMISARTAN
  5. ROSUVASTATIN [Concomitant]
     Active Substance: ROSUVASTATIN
  6. COLESEVELAM HYDROCHLORIDE [Concomitant]
     Active Substance: COLESEVELAM HYDROCHLORIDE
  7. VITAMIN D NOS [Concomitant]
     Active Substance: VITAMIN D NOS

REACTIONS (11)
  - Syncope [Recovering/Resolving]
  - Gait disturbance [Recovered/Resolved]
  - Trigeminal neuralgia [Recovered/Resolved]
  - Nausea [Recovered/Resolved]
  - Sinusitis [Recovering/Resolving]
  - Nasal congestion [Recovering/Resolving]
  - Nasopharyngitis [Recovering/Resolving]
  - Vertigo [Recovered/Resolved]
  - Toothache [Recovering/Resolving]
  - Urinary incontinence [Not Recovered/Not Resolved]
  - Hypertension [Unknown]

NARRATIVE: CASE EVENT DATE: 20210407
